FAERS Safety Report 8578557 (Version 2)
Quarter: 2013Q1

REPORT INFORMATION
  Report Type: Spontaneous
  Country: US (occurrence: US)
  Receive Date: 20120524
  Receipt Date: 20130222
  Transmission Date: 20140127
  Serious: Yes (Other)
  Sender: FDA-Public Use
  Company Number: US-ASTRAZENECA-2012SE31393

PATIENT
  Age: 50 Year
  Sex: Male

DRUGS (1)
  1. NEXIUM [Suspect]
     Route: 048

REACTIONS (3)
  - Oesophageal carcinoma [Unknown]
  - Nasopharyngitis [Unknown]
  - Barrett^s oesophagus [Unknown]
